FAERS Safety Report 12495543 (Version 1)
Quarter: 2016Q2

REPORT INFORMATION
  Report Type: Spontaneous
  Country: US (occurrence: None)
  Receive Date: 20160623
  Receipt Date: 20160623
  Transmission Date: 20160815
  Serious: Yes (Hospitalization, Other)
  Sender: FDA-Public Use
  Company Number: None

PATIENT

DRUGS (1)
  1. DOCUSATE, 10 MG/ML [Suspect]
     Active Substance: DOCUSATE
     Dates: start: 20160201, end: 20160618

REACTIONS (2)
  - Bacterial test positive [None]
  - Product contamination microbial [None]
